FAERS Safety Report 23696780 (Version 1)
Quarter: 2024Q2

REPORT INFORMATION
  Report Type: Spontaneous
  Country: US (occurrence: None)
  Receive Date: 20240401
  Receipt Date: 20240401
  Transmission Date: 20240716
  Serious: No
  Sender: FDA-Public Use
  Company Number: None

PATIENT
  Age: 69 Year
  Sex: Female
  Weight: 149 kg

DRUGS (2)
  1. LUMASON [Suspect]
     Active Substance: SULFUR HEXAFLUORIDE
     Route: 042
  2. WARFARIN [Suspect]
     Active Substance: WARFARIN

REACTIONS (4)
  - Thrombosis [None]
  - Pulseless electrical activity [None]
  - Wean from ventilator [None]
  - Drug hypersensitivity [None]

NARRATIVE: CASE EVENT DATE: 20240327
